FAERS Safety Report 13084130 (Version 2)
Quarter: 2017Q1

REPORT INFORMATION
  Report Type: Report from Study
  Country: US (occurrence: US)
  Receive Date: 20170104
  Receipt Date: 20170308
  Transmission Date: 20170428
  Serious: Yes (Hospitalization, Other)
  Sender: FDA-Public Use
  Company Number: US-RAPTOR PHARMACEUTICALS, INC.-RAP-001264-2016

PATIENT
  Age: 14 Year
  Sex: Female

DRUGS (1)
  1. PROCYSBI DELAYED-RELEASE [Suspect]
     Active Substance: CYSTEAMINE BITARTRATE
     Indication: CHRONIC KIDNEY DISEASE
     Dosage: 750 MG, EVERY 12 HOURS
     Route: 048
     Dates: start: 201608

REACTIONS (1)
  - Renal impairment [Unknown]

NARRATIVE: CASE EVENT DATE: 201612
